FAERS Safety Report 6118221-9 (Version None)
Quarter: 2009Q1

REPORT INFORMATION
  Report Type: 
  Country: None (occurrence: None)
  Receive Date: 20090314
  Receipt Date: 20090210
  Transmission Date: 20090719
  Serious: No
  Sender: FDA-Public Use
  Company Number: US-ABBOTT-09P-163-0502861-00

PATIENT
  Sex: Male
  Weight: 126.21 kg

DRUGS (4)
  1. HUMIRA [Suspect]
     Indication: PSORIASIS
     Dates: start: 20081101
  2. METOPROLOL TARTRATE [Concomitant]
     Indication: HYPERTENSION
  3. ELIDEL [Concomitant]
     Indication: PSORIASIS
     Route: 061
  4. SINGULAIR [Concomitant]
     Indication: HYPERSENSITIVITY

REACTIONS (1)
  - ACCIDENTAL NEEDLE STICK [None]
